FAERS Safety Report 15507115 (Version 1)
Quarter: 2018Q4

REPORT INFORMATION
  Report Type: Spontaneous
  Country: US (occurrence: US)
  Receive Date: 20181016
  Receipt Date: 20181016
  Transmission Date: 20190205
  Serious: Yes (Other)
  Sender: FDA-Public Use
  Company Number: US-BAYER-2018-187541

PATIENT
  Age: 65 Year
  Sex: Female

DRUGS (5)
  1. CLOPIDOGREL [Suspect]
     Active Substance: CLOPIDOGREL BISULFATE
  2. APIXABAN [Suspect]
     Active Substance: APIXABAN
  3. LISINOPRIL. [Concomitant]
     Active Substance: LISINOPRIL
  4. ATORVASTATIN [Concomitant]
     Active Substance: ATORVASTATIN
  5. ACETYLSALICYLIC ACID({=100 MG) [Suspect]
     Active Substance: ASPIRIN

REACTIONS (6)
  - Coronary artery dissection [None]
  - Arterial intramural haematoma [None]
  - Acute myocardial infarction [None]
  - Labelled drug-drug interaction medication error [None]
  - Haemorrhage intracranial [None]
  - Vascular stent thrombosis [None]
